FAERS Safety Report 7299737-9 (Version None)
Quarter: 2011Q1

REPORT INFORMATION
  Report Type: 
  Country: None (occurrence: None)
  Receive Date: 20110217
  Receipt Date: 20110210
  Transmission Date: 20110831
  Serious: Yes (Other)
  Sender: FDA-Public Use
  Company Number: US-US-EMD SERONO, INC.-7003207

PATIENT
  Sex: Female

DRUGS (1)
  1. REBIF [Suspect]
     Indication: MULTIPLE SCLEROSIS
     Route: 058
     Dates: start: 20041119

REACTIONS (6)
  - UTERINE DISORDER [None]
  - AMENORRHOEA [None]
  - HOT FLUSH [None]
  - NIGHT SWEATS [None]
  - HEADACHE [None]
  - INJECTION SITE HAEMATOMA [None]
